FAERS Safety Report 7344277-1 (Version None)
Quarter: 2011Q1

REPORT INFORMATION
  Report Type: 
  Country: None (occurrence: None)
  Receive Date: 20110310
  Receipt Date: 20101008
  Transmission Date: 20110831
  Serious: No
  Sender: FDA-Public Use
  Company Number: A0885638A

PATIENT
  Age: 58 Year
  Sex: Female

DRUGS (5)
  1. DIFLUCAN [Concomitant]
  2. NICORETTE [Suspect]
     Dates: start: 20101008
  3. NICORETTE [Suspect]
  4. NICORETTE [Suspect]
  5. NICORETTE [Suspect]

REACTIONS (7)
  - DYSGEUSIA [None]
  - GLOSSODYNIA [None]
  - TONGUE COATED [None]
  - DRUG ADMINISTRATION ERROR [None]
  - NICOTINE DEPENDENCE [None]
  - INTENTIONAL DRUG MISUSE [None]
  - FUNGAL INFECTION [None]
